FAERS Safety Report 8043746 (Version 2)
Quarter: 2013Q1

REPORT INFORMATION
  Report Type: Spontaneous
  Country: US (occurrence: US)
  Receive Date: 20110719
  Receipt Date: 20130125
  Transmission Date: 20140127
  Serious: Yes (Hospitalization, Congenital Anomaly)
  Sender: FDA-Public Use
  Company Number: US-GLAXOSMITHKLINE-A0930498A

PATIENT
  Age: 0 Year
  Sex: Male

DRUGS (4)
  1. PAXIL [Suspect]
     Indication: PRODUCT USED FOR UNKNOWN INDICATION
     Route: 064
     Dates: end: 19930601
  2. STEROIDS [Concomitant]
     Route: 064
  3. ATARAX [Concomitant]
     Route: 064
  4. BENADRYL [Concomitant]
     Route: 064

REACTIONS (4)
  - Congenital aortic stenosis [Unknown]
  - Patent ductus arteriosus [Unknown]
  - Congenital anomaly [Unknown]
  - Foetal exposure during pregnancy [Unknown]
